FAERS Safety Report 4841058-5 (Version None)
Quarter: 2005Q4

REPORT INFORMATION
  Report Type: 
  Country: None (occurrence: None)
  Receive Date: 20051130
  Receipt Date: 20050912
  Transmission Date: 20060501
  Serious: Yes (Other)
  Sender: FDA-Public Use
  Company Number: US-BRISTOL-MYERS SQUIBB COMPANY-13107529

PATIENT
  Age: 9 Year
  Sex: Male

DRUGS (2)
  1. ABILIFY [Suspect]
     Indication: IMPULSIVE BEHAVIOUR
     Dosage: REDUCED TO 1/2 TAB BID ON 02-AUG-05, THEN 1/2 TAB QAM
     Route: 048
     Dates: start: 20030501
  2. ABILIFY [Suspect]
     Indication: AGGRESSION
     Dosage: REDUCED TO 1/2 TAB BID ON 02-AUG-05, THEN 1/2 TAB QAM
     Route: 048
     Dates: start: 20030501

REACTIONS (1)
  - EYELID PTOSIS [None]
